FAERS Safety Report 5488232-5 (Version None)
Quarter: 2007Q4

REPORT INFORMATION
  Report Type: 
  Country: None (occurrence: None)
  Receive Date: 20071017
  Receipt Date: 20071015
  Transmission Date: 20080405
  Serious: Yes (Other)
  Sender: FDA-Public Use
  Company Number: A0688288A

PATIENT
  Age: 59 Year
  Sex: Male

DRUGS (4)
  1. NICORETTE [Suspect]
     Indication: SMOKING CESSATION THERAPY
     Route: 002
     Dates: start: 20070701, end: 20070101
  2. OMEPRAZOLE [Concomitant]
  3. ENALAPRIL MALEATE [Concomitant]
  4. CENTRUM [Concomitant]

REACTIONS (2)
  - GINGIVAL PAIN [None]
  - SKIN CANCER [None]
